FAERS Safety Report 4325567-3 (Version None)
Quarter: 2004Q1

REPORT INFORMATION
  Report Type: 
  Country: None (occurrence: None)
  Receive Date: 20040324
  Receipt Date: 20040305
  Transmission Date: 20041129
  Serious: Yes (Death)
  Sender: FDA-Public Use
  Company Number: SYNAGIS-04284(2)

PATIENT
  Age: 4 Month
  Sex: Female
  Weight: 7.22 kg

DRUGS (4)
  1. SYNAGIS [Suspect]
     Indication: ANTIVIRAL PROPHYLAXIS
     Dosage: 100 MG, 1 IN 30 D, INTRAMUSCULAR
     Route: 030
     Dates: start: 20030913, end: 20031009
  2. PEDIARIX [Suspect]
     Dates: start: 20031009, end: 20031009
  3. PREVNAR [Suspect]
  4. HAEMOPHILUS INFLUENZAE B (HAEMOPHILUS INFLUENZAE B) [Suspect]
     Dates: start: 20031009, end: 20031009

REACTIONS (4)
  - EAR INFECTION [None]
  - IRRITABILITY [None]
  - PYREXIA [None]
  - SUDDEN DEATH [None]
